FAERS Safety Report 19607201 (Version 2)
Quarter: 2021Q3

REPORT INFORMATION
  Report Type: Report from Study
  Country: None (occurrence: US)
  Receive Date: 20210726
  Receipt Date: 20210802
  Transmission Date: 20211014
  Serious: No
  Sender: FDA-Public Use
  Company Number: US-ABBVIE-21K-163-3999774-00

PATIENT
  Sex: Female

DRUGS (4)
  1. COVID?19 VACCINE [Concomitant]
     Route: 030
  2. HUMIRA [Suspect]
     Active Substance: ADALIMUMAB
     Indication: CROHN^S DISEASE
     Route: 058
     Dates: start: 202005
  3. COVID?19 VACCINE [Concomitant]
     Indication: COVID-19 IMMUNISATION
     Route: 030
  4. BUDESONIDE. [Concomitant]
     Active Substance: BUDESONIDE
     Indication: INFLAMMATION

REACTIONS (1)
  - Stenosis [Recovering/Resolving]

NARRATIVE: CASE EVENT DATE: 2021
